FAERS Safety Report 6398181-6 (Version None)
Quarter: 2009Q4

REPORT INFORMATION
  Report Type: 
  Country: None (occurrence: None)
  Receive Date: 20091013
  Receipt Date: 20091008
  Transmission Date: 20100525
  Serious: Yes (Other)
  Sender: FDA-Public Use
  Company Number: US-BRISTOL-MYERS SQUIBB COMPANY-14805675

PATIENT
  Age: 44 Year
  Sex: Male

DRUGS (1)
  1. SUSTIVA [Suspect]
     Indication: HIV INFECTION
     Dosage: 1 DOSAGE FORM - 600 (UNITS NOT SPECIFIED), FREQUENCY- QHS
     Route: 048
     Dates: start: 20090921

REACTIONS (1)
  - CHOLESTASIS [None]
